FAERS Safety Report 7325052-0 (Version None)
Quarter: 2011Q1

REPORT INFORMATION
  Report Type: 
  Country: None (occurrence: None)
  Receive Date: 20110302
  Receipt Date: 20110223
  Transmission Date: 20110831
  Serious: Yes (Hospitalization, Other)
  Sender: FDA-Public Use
  Company Number: US-ASTRAZENECA-2007UW02156

PATIENT
  Age: 512 Month
  Sex: Male
  Weight: 107.5 kg

DRUGS (17)
  1. SEROQUEL [Suspect]
     Indication: DEPRESSION
     Dosage: 25-100 MG
     Route: 048
     Dates: start: 19990916, end: 20060301
  2. RISPERDAL [Concomitant]
     Dates: start: 20031001, end: 20031201
  3. LIPITOR [Concomitant]
  4. SEROQUEL [Suspect]
     Indication: BIPOLAR DISORDER
     Dosage: 25-100 MG
     Route: 048
     Dates: start: 19990916, end: 20060301
  5. SEROQUEL [Suspect]
     Route: 048
     Dates: start: 20060315
  6. RISPERDAL [Concomitant]
     Dates: start: 19990101
  7. NEURONTIN [Concomitant]
     Dates: start: 19990916
  8. ZYPREXA [Concomitant]
     Dates: start: 20030901, end: 20031001
  9. FLOVENT [Concomitant]
     Dosage: 220 MCG, 2 PUFFS TWICE A DAY
     Dates: start: 20020306
  10. GLYBURIDE [Concomitant]
     Dates: start: 20051026, end: 20060830
  11. SEROQUEL [Suspect]
     Route: 048
     Dates: start: 20060315
  12. SEROQUEL [Suspect]
     Route: 048
     Dates: start: 20060315
  13. KLONOPIN [Concomitant]
     Dates: start: 19990916
  14. RISPERDAL [Concomitant]
     Dates: start: 19990823
  15. SEROQUEL [Suspect]
     Indication: SLEEP DISORDER
     Dosage: 25-100 MG
     Route: 048
     Dates: start: 19990916, end: 20060301
  16. ZOLOFT [Concomitant]
     Indication: DEPRESSION
     Dosage: 25 TO 100 MG
     Dates: start: 19990916
  17. METFORMIN [Concomitant]
     Dates: start: 20040406

REACTIONS (7)
  - CHOLESTEROSIS [None]
  - CHOLELITHIASIS [None]
  - BILIARY COLIC [None]
  - CHOLECYSTITIS CHRONIC [None]
  - BLOOD CHOLESTEROL INCREASED [None]
  - TYPE 2 DIABETES MELLITUS [None]
  - GALLBLADDER DISORDER [None]
